FAERS Safety Report 7420870-2 (Version None)
Quarter: 2011Q2

REPORT INFORMATION
  Report Type: 
  Country: None (occurrence: None)
  Receive Date: 20110418
  Receipt Date: 20110414
  Transmission Date: 20111010
  Serious: Yes (Death, Hospitalization, Other)
  Sender: FDA-Public Use
  Company Number: PHHY2010MX48694

PATIENT
  Age: 85 Year
  Sex: Female

DRUGS (4)
  1. ACLASTA [Suspect]
     Indication: OSTEOPOROSIS
     Dosage: 5 MG, UNK
     Route: 042
     Dates: start: 20090301
  2. INSULIN [Concomitant]
     Indication: DIABETES MELLITUS
     Dosage: 6 IU, UNK
  3. ANTIBIOTICS [Concomitant]
  4. ANALGESICS [Concomitant]

REACTIONS (7)
  - SEPSIS [None]
  - RESPIRATORY ARREST [None]
  - FALL [None]
  - ULCER [None]
  - GAIT DISTURBANCE [None]
  - NECROSIS [None]
  - POSTOPERATIVE WOUND INFECTION [None]
